FAERS Safety Report 10119155 (Version 1)
Quarter: 2014Q2

REPORT INFORMATION
  Report Type: Spontaneous
  Country: US (occurrence: US)
  Receive Date: 20140425
  Receipt Date: 20140425
  Transmission Date: 20141212
  Serious: No
  Sender: FDA-Public Use
  Company Number: US-TEVA-477942USA

PATIENT
  Age: 46 Year
  Sex: Female
  Weight: 104.87 kg

DRUGS (12)
  1. PROAIR HFA [Suspect]
     Indication: ASTHMA
     Dates: start: 20140414
  2. POTASSIUM [Concomitant]
     Indication: BLOOD POTASSIUM DECREASED
     Dosage: 40 MILLIEQUIVALENTS DAILY;
     Route: 048
  3. TOPIRAMATE [Concomitant]
     Indication: MIGRAINE
  4. TOPIRAMATE [Concomitant]
     Indication: FIBROMYALGIA
  5. TIZANIDINE [Concomitant]
     Indication: MUSCLE SPASMS
     Route: 048
  6. ZOLPIDEM [Concomitant]
     Indication: SLEEP DISORDER
  7. AMRIX [Concomitant]
  8. VITAMIN B12 NOS [Concomitant]
  9. PERCOCET [Concomitant]
     Indication: PAIN
  10. OXYCONTIN [Concomitant]
     Indication: PAIN
  11. XANAX [Concomitant]
     Indication: ANXIETY
  12. BOTOX [Concomitant]
     Indication: MIGRAINE

REACTIONS (2)
  - Chest pain [Not Recovered/Not Resolved]
  - Chest discomfort [Not Recovered/Not Resolved]
